FAERS Safety Report 10759205 (Version 1)
Quarter: 2015Q1

REPORT INFORMATION
  Report Type: Not Available
  Country: IT (occurrence: IT)
  Receive Date: 20150203
  Receipt Date: 20150203
  Transmission Date: 20150721
  Serious: Yes (Other)
  Sender: FDA-Public Use
  Company Number: IT-MUNDIPHARMA DS AND PHARMACOVIGILANCE-GBR-2015-0025242

PATIENT
  Age: 31 Year
  Sex: Male

DRUGS (7)
  1. DELORAZEPAM [Suspect]
     Active Substance: DELORAZEPAM
     Indication: DRUG ABUSE
     Dosage: 4 POSOLOGIC UNITS
     Route: 048
     Dates: start: 20150104, end: 20150104
  2. PREFOLIC [Suspect]
     Active Substance: LEUCOVORIN CALCIUM
     Indication: DRUG ABUSE
     Dosage: 5 DF POSOLOGIC UNITS, (15 MG)
     Route: 048
     Dates: start: 20150104, end: 20150104
  3. HALCION [Suspect]
     Active Substance: TRIAZOLAM
     Indication: DRUG ABUSE
     Dosage: 7 DF POSOLOGIC UNITS (125 MCG)
     Route: 048
     Dates: start: 20150104, end: 20150104
  4. TARGIN COMPRESSA A RILASCIO PROLUNGATO CONTIENE 5MG/2,5MG [Suspect]
     Active Substance: NALOXONE HYDROCHLORIDE\OXYCODONE HYDROCHLORIDE
     Indication: DRUG ABUSE
     Dosage: 5 MG/2.5MG,  11 POSOLOGIC UNITS
     Route: 048
     Dates: start: 20150104, end: 20150104
  5. ATARAX [Suspect]
     Active Substance: HYDROXYZINE\HYDROXYZINE HYDROCHLORIDE
     Indication: DRUG ABUSE
     Dosage: 5 DF, POSOLOGIC UNITS, (25 MG)
     Route: 048
     Dates: start: 20150104, end: 20150104
  6. DEPALGOS [Suspect]
     Active Substance: ACETAMINOPHEN\OXYCODONE HYDROCHLORIDE
     Indication: DRUG ABUSE
     Dosage: 4 DF POSOLOGIC UNITS (5 MG/325 MG)
     Route: 048
     Dates: start: 20150104, end: 20150104
  7. FERRO GRADUMET [Suspect]
     Active Substance: FERROUS SULFATE\FERROUS SULFATE, DRIED
     Indication: DRUG ABUSE
     Dosage: 1 DF, POSOLOGIC UNITS, (105 MG)
     Route: 048
     Dates: start: 20150104, end: 20150104

REACTIONS (4)
  - Intentional self-injury [Unknown]
  - Drug abuse [Unknown]
  - Confusional state [Unknown]
  - Agitation [Unknown]

NARRATIVE: CASE EVENT DATE: 20150104
